FAERS Safety Report 4361219-1 (Version None)
Quarter: 2004Q2

REPORT INFORMATION
  Report Type: 
  Country: None (occurrence: None)
  Receive Date: 20040518
  Receipt Date: 20040422
  Transmission Date: 20050107
  Serious: Yes (Other)
  Sender: FDA-Public Use
  Company Number: S04-USA-02757-01

PATIENT

DRUGS (1)
  1. LEXAPRO [Suspect]

REACTIONS (2)
  - CONVULSION [None]
  - MULTIPLE DRUG OVERDOSE [None]
